FAERS Safety Report 22246258 (Version 2)
Quarter: 2023Q2

REPORT INFORMATION
  Report Type: Spontaneous
  Country: US (occurrence: US)
  Receive Date: 20230424
  Receipt Date: 20230608
  Transmission Date: 20230722
  Serious: Yes (Other)
  Sender: FDA-Public Use
  Company Number: US-BEH-2023157682

PATIENT
  Age: 72 Year
  Sex: Female

DRUGS (4)
  1. HAEGARDA [Suspect]
     Active Substance: HUMAN C1-ESTERASE INHIBITOR
     Indication: Hereditary angioedema
     Dosage: 3800 INTERNATIONAL UNIT, BIW
     Route: 058
     Dates: start: 202212
  2. HAEGARDA [Suspect]
     Active Substance: HUMAN C1-ESTERASE INHIBITOR
     Indication: Prophylaxis
     Dosage: UNK
     Route: 058
     Dates: start: 20230330
  3. HAEGARDA [Suspect]
     Active Substance: HUMAN C1-ESTERASE INHIBITOR
     Dosage: 3800 INTERNATIONAL UNIT, BIW
     Route: 058
     Dates: start: 202001
  4. ICATIBANT [Concomitant]
     Active Substance: ICATIBANT ACETATE
     Indication: Prophylaxis
     Dosage: 1 DOSAGE FORM, PRN

REACTIONS (6)
  - Hereditary angioedema [Recovering/Resolving]
  - Hereditary angioedema [Recovering/Resolving]
  - No adverse event [Unknown]
  - Product dose omission issue [Unknown]
  - Product use issue [Unknown]
  - Cyst [Unknown]

NARRATIVE: CASE EVENT DATE: 20230321
